FAERS Safety Report 10551438 (Version 1)
Quarter: 2014Q4

REPORT INFORMATION
  Report Type: Report from Study
  Country: US (occurrence: US)
  Receive Date: 20141029
  Receipt Date: 20141029
  Transmission Date: 20150529
  Serious: Yes (Other)
  Sender: FDA-Public Use
  Company Number: US-ACTELION-A-US2014-107018

PATIENT
  Age: 65 Year
  Sex: Female

DRUGS (4)
  1. TREPROSTINIL [Concomitant]
     Active Substance: TREPROSTINIL
  2. ADCIRCA [Concomitant]
     Active Substance: TADALAFIL
  3. MACITENTAN [Suspect]
     Active Substance: MACITENTAN
     Indication: PULMONARY ARTERIAL HYPERTENSION
     Dosage: 10 MG, QD
     Route: 048
     Dates: start: 20140305
  4. COUMADIN [Concomitant]
     Active Substance: WARFARIN SODIUM

REACTIONS (2)
  - Headache [Unknown]
  - Cerebrovascular accident [Unknown]
